FAERS Safety Report 23972633 (Version 1)
Quarter: 2024Q2

REPORT INFORMATION
  Report Type: Spontaneous
  Country: US (occurrence: None)
  Receive Date: 20240613
  Receipt Date: 20240613
  Transmission Date: 20240716
  Serious: Yes (Life-Threatening, Hospitalization)
  Sender: FDA-Public Use
  Company Number: None

PATIENT
  Age: 75 Year
  Sex: Male
  Weight: 119.25 kg

DRUGS (1)
  1. OZEMPIC [Suspect]
     Active Substance: SEMAGLUTIDE
     Indication: Diabetes mellitus
     Dosage: FREQUENCY : DAILY;?
     Route: 058
     Dates: start: 20231105, end: 20231225

REACTIONS (2)
  - Angioedema [None]
  - Loss of consciousness [None]

NARRATIVE: CASE EVENT DATE: 20231225
